FAERS Safety Report 25937417 (Version 3)
Quarter: 2025Q4

REPORT INFORMATION
  Report Type: Report from Study
  Country: KR (occurrence: KR)
  Receive Date: 20251018
  Receipt Date: 20251217
  Transmission Date: 20260118
  Serious: Yes (Death)
  Sender: ABBVIE
  Company Number: KR-ABBVIE-6508093

PATIENT
  Age: 73 Year
  Sex: Male
  Weight: 72 kg

DRUGS (34)
  1. VENCLEXTA [Suspect]
     Active Substance: VENETOCLAX
     Indication: Acute myeloid leukaemia
     Route: 048
     Dates: start: 20250925, end: 20250925
  2. VENCLEXTA [Suspect]
     Active Substance: VENETOCLAX
     Indication: Acute myeloid leukaemia
     Route: 048
     Dates: start: 20250924, end: 20250924
  3. VENCLEXTA [Suspect]
     Active Substance: VENETOCLAX
     Indication: Acute myeloid leukaemia
     Route: 048
     Dates: start: 20251001, end: 20251008
  4. VENCLEXTA [Suspect]
     Active Substance: VENETOCLAX
     Indication: Acute myeloid leukaemia
     Route: 048
     Dates: start: 20250926, end: 20250928
  5. VENCLEXTA [Suspect]
     Active Substance: VENETOCLAX
     Indication: Acute myeloid leukaemia
     Route: 048
     Dates: start: 20250923, end: 20250923
  6. Ursa daewoong [Concomitant]
     Indication: Liver function test increased
     Route: 048
     Dates: start: 20250925, end: 20250928
  7. Zopista [Concomitant]
     Indication: Insomnia
     Dosage: 1MG
     Route: 048
     Dates: start: 20250902, end: 20250928
  8. TAPOCIN [Concomitant]
     Indication: Pyrexia
     Dosage: 400MG
     Route: 042
     Dates: start: 20250925, end: 20250928
  9. NAXOZOL [Concomitant]
     Indication: Pyrexia
     Dosage: 500/20MG
     Route: 048
     Dates: start: 20250923, end: 20250928
  10. VANCOMYCIN HYDROCHLORIDE [Concomitant]
     Active Substance: VANCOMYCIN HYDROCHLORIDE
     Indication: Pyrexia
     Route: 042
     Dates: start: 20250904, end: 20250925
  11. VIZADAKIN [Concomitant]
     Indication: Acute myeloid leukaemia
     Route: 042
     Dates: start: 20250923, end: 20250929
  12. TASNA [Concomitant]
     Indication: Metabolic acidosis
     Dosage: 500 MG
     Route: 048
     Dates: start: 20250918, end: 20250925
  13. ACETYLCYSTEINE [Concomitant]
     Active Substance: ACETYLCYSTEINE
     Indication: Upper respiratory tract infection
     Dosage: 100MG/ML 3ML/A
     Route: 042
     Dates: start: 20250917, end: 20251012
  14. MELATONIN [Concomitant]
     Active Substance: MELATONIN
     Indication: Insomnia
     Dosage: PR, 2MG
     Route: 048
     Dates: start: 20251004, end: 20251009
  15. FOTAGEL [Concomitant]
     Indication: Diarrhoea
     Dosage: SUSPENSION 20 ML
     Route: 048
     Dates: start: 20250926, end: 20250927
  16. METHYLPREDNISOLONE [Concomitant]
     Active Substance: METHYLPREDNISOLONE
     Indication: Drug eruption
     Dosage: 125 MG
     Route: 042
     Dates: start: 20250930, end: 20251010
  17. SULFAMETHOXAZOLE\TRIMETHOPRIM [Concomitant]
     Active Substance: SULFAMETHOXAZOLE\TRIMETHOPRIM
     Indication: Infection prophylaxis
     Route: 048
     Dates: start: 20250923
  18. PROPACETAMOL HYDROCHLORIDE [Concomitant]
     Active Substance: PROPACETAMOL HYDROCHLORIDE
     Indication: Pyrexia
     Route: 042
     Dates: start: 20250918
  19. Vacrax [Concomitant]
     Indication: Infection prophylaxis
     Dosage: 200MG
     Route: 048
     Dates: start: 20250923
  20. Yuhan meropen [Concomitant]
     Indication: Pyrexia
     Dosage: TIME INTERVAL: 0.33333333 DAYS: 500 MG
     Route: 042
     Dates: start: 20250909, end: 20251002
  21. ALLOPURINOL [Concomitant]
     Active Substance: ALLOPURINOL
     Indication: Prophylaxis
     Dosage: 100 MG
     Route: 048
     Dates: start: 20250923, end: 20250928
  22. PRUCALOPRIDE SUCCINATE [Concomitant]
     Active Substance: PRUCALOPRIDE SUCCINATE
     Indication: Constipation
     Dosage: 2 MG
     Route: 048
     Dates: start: 20250917, end: 20250926
  23. Godex [Concomitant]
     Indication: Liver function test increased
     Route: 048
     Dates: start: 20250925, end: 20250928
  24. ACETPHEN PREMIX [Concomitant]
     Indication: Abdominal pain
     Dosage: 50 ML
     Route: 042
     Dates: start: 20250927, end: 20251013
  25. TYLICOL [Concomitant]
     Indication: Pyrexia
     Route: 042
     Dates: start: 20251014
  26. ATIVAN [Concomitant]
     Active Substance: LORAZEPAM
     Indication: Insomnia
     Dosage: 2MG/0.5ML
     Route: 042
     Dates: start: 20250929, end: 20251001
  27. ORNITHINE ASPARTATE [Concomitant]
     Active Substance: ORNITHINE ASPARTATE
     Indication: Liver function test increased
     Dosage: 500MG/5ML
     Route: 042
     Dates: start: 20250925, end: 20250929
  28. PENIRAMIN [Concomitant]
     Indication: Drug eruption
     Route: 042
     Dates: start: 20250925
  29. KETOROLAC TROMETHAMINE [Concomitant]
     Active Substance: KETOROLAC TROMETHAMINE
     Indication: Ileus
     Route: 042
     Dates: start: 20250909, end: 20251008
  30. METOCLOPRAMIDE HYDROCHLORIDE [Concomitant]
     Active Substance: METOCLOPRAMIDE HYDROCHLORIDE
     Indication: Ileus
     Dosage: TIME INTERVAL: 0.33333333 DAYS: 2 ML
     Route: 042
     Dates: start: 20250916
  31. Mucosta sr [Concomitant]
     Indication: Gastrointestinal disorder
     Dosage: 150 MG
     Route: 048
     Dates: start: 20250919, end: 20251014
  32. ACTIFED (PSEUDOEPHEDRINE HYDROCHLORIDE\TRIPROLIDINE HYDROCHLORIDE) [Concomitant]
     Active Substance: PSEUDOEPHEDRINE HYDROCHLORIDE\TRIPROLIDINE HYDROCHLORIDE
     Indication: Upper respiratory tract infection
     Dosage: TIME INTERVAL: 0.33333333 DAYS
     Route: 048
     Dates: start: 20250917, end: 20250929
  33. RAMOSETRON HYDROCHLORIDE [Concomitant]
     Active Substance: RAMOSETRON HYDROCHLORIDE
     Indication: Prophylaxis of nausea and vomiting
     Dosage: 0.3MG (AMP)
     Route: 042
     Dates: start: 20250923, end: 20250929
  34. CASFUNG [Concomitant]
     Indication: Pyrexia
     Dosage: 50 MG
     Route: 042
     Dates: start: 20250925, end: 20251009

REACTIONS (1)
  - Pneumonia [Fatal]

NARRATIVE: CASE EVENT DATE: 20251009
